FAERS Safety Report 8376773-2 (Version None)
Quarter: 2012Q2

REPORT INFORMATION
  Report Type: 
  Country: None (occurrence: None)
  Receive Date: 20120522
  Receipt Date: 20120223
  Transmission Date: 20120825
  Serious: No
  Sender: FDA-Public Use
  Company Number: US-BRISTOL-MYERS SQUIBB COMPANY-16415804

PATIENT
  Age: 67 Year
  Sex: Female

DRUGS (6)
  1. VITAMIN TAB [Concomitant]
  2. ONGLYZA [Suspect]
  3. PRAVASTATIN SODIUM [Concomitant]
  4. HYZAAR [Concomitant]
  5. GLUMETZA [Concomitant]
  6. ACIPHEX [Concomitant]

REACTIONS (4)
  - FALL [None]
  - VISION BLURRED [None]
  - DIZZINESS [None]
  - HEADACHE [None]
